FAERS Safety Report 10588312 (Version 1)
Quarter: 2014Q4

REPORT INFORMATION
  Report Type: Spontaneous
  Country: US (occurrence: US)
  Receive Date: 20141117
  Receipt Date: 20141117
  Transmission Date: 20150529
  Serious: Yes (Life-Threatening)
  Sender: FDA-Public Use
  Company Number: US-ASTRAZENECA-2014SE85384

PATIENT
  Age: 39 Year
  Sex: Male

DRUGS (2)
  1. K2 [Suspect]
     Active Substance: JWH-018
     Dosage: DAILY FOR YEARS MORE HEAVILY FOR ONE WEEK
  2. QUETIAPINE [Suspect]
     Active Substance: QUETIAPINE
     Dosage: 10 TABLETS
     Route: 048

REACTIONS (3)
  - Rhabdomyolysis [Recovered/Resolved]
  - Acute kidney injury [Recovered/Resolved]
  - Suicide attempt [Recovered/Resolved]
